FAERS Safety Report 5273782-7 (Version None)
Quarter: 2007Q1

REPORT INFORMATION
  Report Type: 
  Country: None (occurrence: None)
  Receive Date: 20070323
  Receipt Date: 20070319
  Transmission Date: 20070707
  Serious: No
  Sender: FDA-Public Use
  Company Number: FR-AVENTIS-200612012FR

PATIENT
  Age: 35 Year
  Sex: Female

DRUGS (3)
  1. ARAVA [Suspect]
     Indication: RHEUMATOID ARTHRITIS
     Route: 048
     Dates: start: 20020101, end: 20060201
  2. ARAVA [Suspect]
     Route: 048
     Dates: start: 20060201, end: 20060531
  3. MOBIC [Concomitant]
     Indication: RHEUMATOID ARTHRITIS
     Dates: end: 20060101

REACTIONS (2)
  - DRUG EXPOSURE DURING PREGNANCY [None]
  - MEDICATION ERROR [None]
